FAERS Safety Report 4459191-9 (Version None)
Quarter: 2004Q3

REPORT INFORMATION
  Report Type: 
  Country: None (occurrence: None)
  Receive Date: 20040920
  Receipt Date: 20040920
  Transmission Date: 20050211
  Serious: Yes (Hospitalization)
  Sender: FDA-Public Use
  Company Number: None

PATIENT
  Age: 36 Year
  Sex: Female

DRUGS (4)
  1. SUMATRIPTAN 5 MG GLAXO/SMITH/KLINE [Suspect]
     Indication: MIGRAINE
     Dosage: 5 MG ONE TIME NASAL
     Route: 045
     Dates: start: 20040607, end: 20040607
  2. WARFARIN SODIUM [Concomitant]
  3. VICODIN [Concomitant]
  4. IBUPROFEN [Concomitant]

REACTIONS (1)
  - CONVULSION [None]
